FAERS Safety Report 7922894-5 (Version None)
Quarter: 2011Q4

REPORT INFORMATION
  Report Type: 
  Country: None (occurrence: None)
  Receive Date: 20111117
  Receipt Date: 20110808
  Transmission Date: 20120403
  Serious: No
  Sender: FDA-Public Use
  Company Number: US-ALLERGAN-1110660US

PATIENT
  Age: 69 Year
  Sex: Female

DRUGS (2)
  1. LASTACAFT [Suspect]
     Indication: EYE ALLERGY
     Dosage: 2 GTT, QD
     Route: 047
     Dates: start: 20110701, end: 20110806
  2. LASTACAFT [Suspect]
     Dosage: 2 GTT, QD
     Route: 047
     Dates: start: 20110701, end: 20110806

REACTIONS (7)
  - EYE IRRITATION [None]
  - PARANASAL SINUS HYPERSECRETION [None]
  - EYE PRURITUS [None]
  - FATIGUE [None]
  - THROAT IRRITATION [None]
  - PAIN [None]
  - HEADACHE [None]
